FAERS Safety Report 7404854-6 (Version None)
Quarter: 2011Q1

REPORT INFORMATION
  Report Type: 
  Country: None (occurrence: None)
  Receive Date: 20110301
  Receipt Date: 20101117
  Transmission Date: 20110831
  Serious: Yes (Disabling, Other)
  Sender: FDA-Public Use
  Company Number: ALA_01481_2011

PATIENT
  Sex: Female
  Weight: 65.7716 kg

DRUGS (27)
  1. ETODOLAC [Concomitant]
  2. BENZONATATE [Concomitant]
  3. REGLAN [Suspect]
     Indication: GASTROOESOPHAGEAL REFLUX DISEASE
     Dosage: (5-10MG TID ORAL)
     Route: 048
     Dates: start: 20040301, end: 20090701
  4. REGLAN [Suspect]
     Indication: NAUSEA
     Dosage: (5-10MG TID ORAL)
     Route: 048
     Dates: start: 20040301, end: 20090701
  5. ENTOCORT EC [Concomitant]
  6. ALLOPURINOL [Concomitant]
  7. CLINDAMYCIN [Concomitant]
  8. PHENERGAN /00488301/ [Concomitant]
  9. HYDROXYLINE HYDROCHLORIDE [Concomitant]
  10. PREMARIN [Concomitant]
  11. GABAPENTIN [Concomitant]
  12. ATENOLOL [Concomitant]
  13. LIDOCAINE [Concomitant]
  14. LORTAB [Concomitant]
  15. AMITRIPTYLINE [Concomitant]
  16. PREDNISONE [Concomitant]
  17. CARAFATE [Concomitant]
  18. FUROSEMIDE [Concomitant]
  19. DILANTIN [Concomitant]
  20. TERBINAFINE [Concomitant]
  21. TRAZODONE [Concomitant]
  22. SERTRALINE [Concomitant]
  23. HYDROXYZINE PAMOATE [Concomitant]
  24. SINGULAIR [Concomitant]
  25. PROPOXYPHENE NAPSYLATE [Concomitant]
  26. SYNTHROID [Concomitant]
  27. ASACOL [Concomitant]

REACTIONS (1)
  - TARDIVE DYSKINESIA [None]
